FAERS Safety Report 15687785 (Version 1)
Quarter: 2018Q4

REPORT INFORMATION
  Report Type: Spontaneous
  Country: US (occurrence: US)
  Receive Date: 20181205
  Receipt Date: 20181205
  Transmission Date: 20190205
  Serious: Yes (Life-Threatening)
  Sender: FDA-Public Use
  Company Number: US-ROCHE-2193359

PATIENT
  Sex: Male
  Weight: 93 kg

DRUGS (7)
  1. HEPARIN [Concomitant]
     Active Substance: HEPARIN SODIUM
     Route: 040
  2. BENADRYL [Concomitant]
     Active Substance: DIPHENHYDRAMINE HYDROCHLORIDE
     Route: 040
  3. ACTIVASE [Suspect]
     Active Substance: ALTEPLASE
     Dosage: BOLUS OVER 30 MINUTES
     Route: 040
  4. PEPCID (UNITED STATES) [Concomitant]
     Route: 040
  5. ACTIVASE [Suspect]
     Active Substance: ALTEPLASE
     Indication: PRODUCT USED FOR UNKNOWN INDICATION
     Dosage: EXPIRATION ON CRASH CART LOG, BOLUS OVER MINUTE
     Route: 040
  6. SOLU-MEDROL [Concomitant]
     Active Substance: METHYLPREDNISOLONE SODIUM SUCCINATE
     Route: 065
  7. ZOFRAN [Concomitant]
     Active Substance: ONDANSETRON HYDROCHLORIDE
     Route: 040

REACTIONS (2)
  - Vomiting [Unknown]
  - Swollen tongue [Unknown]
